FAERS Safety Report 10741630 (Version 2)
Quarter: 2015Q1

REPORT INFORMATION
  Report Type: Spontaneous
  Country: US (occurrence: US)
  Receive Date: 20150127
  Receipt Date: 20150205
  Transmission Date: 20150721
  Serious: Yes (Other)
  Sender: FDA-Public Use
  Company Number: US-009507513-1501USA008521

PATIENT

DRUGS (1)
  1. INVANZ [Suspect]
     Active Substance: ERTAPENEM SODIUM
     Indication: BACTERIAL INFECTION
     Dosage: UNK

REACTIONS (3)
  - Gangrene [Unknown]
  - Dermatitis [Unknown]
  - Rash [Unknown]
